FAERS Safety Report 19101493 (Version 1)
Quarter: 2021Q2

REPORT INFORMATION
  Report Type: Not Available
  Country: US (occurrence: None)
  Receive Date: 20210407
  Receipt Date: 20210407
  Transmission Date: 20210717
  Serious: No
  Sender: FDA-Public Use
  Company Number: US-AKORN-164958

PATIENT
  Sex: Male

DRUGS (1)
  1. LIDOCAINE HCL ORAL TOPICAL SOLUTION, USP [Suspect]
     Active Substance: LIDOCAINE HYDROCHLORIDE

REACTIONS (3)
  - Hypersensitivity [Unknown]
  - Rash pruritic [Unknown]
  - Urticaria [Unknown]
